FAERS Safety Report 17716427 (Version 1)
Quarter: 2020Q2

REPORT INFORMATION
  Report Type: Spontaneous
  Country: FR (occurrence: FR)
  Receive Date: 20200428
  Receipt Date: 20200428
  Transmission Date: 20200714
  Serious: Yes (Life-Threatening, Hospitalization, Other)
  Sender: FDA-Public Use
  Company Number: FR-CHEPLA-C20201346

PATIENT
  Age: 62 Year
  Sex: Female
  Weight: 57 kg

DRUGS (24)
  1. VINCRISTINE [Suspect]
     Active Substance: VINCRISTINE
     Dates: start: 201912
  2. DOXORUBICIN [Suspect]
     Active Substance: DOXORUBICIN
     Dosage: MAINTENANCE C3 THERAPY
     Dates: start: 20200328
  3. SPECIAFOLDINE 5 MG, COMPRIME [Concomitant]
     Active Substance: FOLIC ACID
     Dosage: 1 TABLET ON TUESDAY, THURSDAY AND SATURDAY
  4. HIGH DOSE CYTARABINE [Suspect]
     Active Substance: CYTARABINE
     Dosage: 1 COURSE OF CYVE
     Dates: start: 201912
  5. METHOTREXATE. [Suspect]
     Active Substance: METHOTREXATE
     Dates: start: 201912
  6. CYCLOPHOSPHAMIDE. [Suspect]
     Active Substance: CYCLOPHOSPHAMIDE
     Dosage: MAINTENANCE C3
     Dates: start: 20200328
  7. CYTARABINE ACCORD 100 MG/ML, SOLUTION INJECTABLE OU POUR PERFUSION [Suspect]
     Active Substance: CYTARABINE
     Indication: BURKITT^S LYMPHOMA
     Dosage: C2: 100 MG / M2 / DAY IN 2 INJECTIONS 12H APART BY SUBCUTANEOUS INJECTION FROM D1 TO D5
     Route: 058
     Dates: start: 20200226, end: 20200301
  8. VINCRISTINE [Suspect]
     Active Substance: VINCRISTINE
  9. TAHOR [Concomitant]
     Active Substance: ATORVASTATIN CALCIUM
     Dosage: 1 TABLET IN THE EVENING
  10. ETOPOPHOS [Suspect]
     Active Substance: ETOPOSIDE PHOSPHATE
     Indication: BURKITT^S LYMPHOMA
     Dosage: C2: 150 MG / M2 / DAY BY INTRAVENOUS INJECTION WITH D1 TO D3
     Route: 041
     Dates: start: 20200226, end: 20200228
  11. VINCRISTINE [Suspect]
     Active Substance: VINCRISTINE
     Dosage: MAINTENANCE C1 WITH VINCRISTINE 2 MG
     Dates: start: 20200129
  12. CYCLOPHOSPHAMIDE. [Suspect]
     Active Substance: CYCLOPHOSPHAMIDE
     Dates: start: 201912
  13. SOLUPRED [PREDNISOLONE] [Suspect]
     Active Substance: PREDNISOLONE
     Dosage: PER OS 100 MG PER DAY
     Route: 048
     Dates: start: 20200129
  14. IMOVANE [Concomitant]
     Active Substance: ZOPICLONE
     Dosage: 1 TABLET IN THE EVENING IF INSOMNIA
  15. BACTRIM [Concomitant]
     Active Substance: SULFAMETHOXAZOLE\TRIMETHOPRIM
     Dosage: 1 TABLET ON MONDAY, WEDNESDAY AND FRIDAY
     Dates: end: 20200328
  16. ETOPOSIDE. [Suspect]
     Active Substance: ETOPOSIDE
     Indication: BURKITT^S LYMPHOMA
     Dosage: 1 COURSE OF CYVE
     Dates: start: 201912
  17. METHOTREXATE. [Suspect]
     Active Substance: METHOTREXATE
     Dosage: C3 MAINTENANCE THERAPY
     Dates: start: 20200328
  18. DOXORUBICIN [Suspect]
     Active Substance: DOXORUBICIN
     Dates: start: 201912
  19. METHOTREXATE. [Suspect]
     Active Substance: METHOTREXATE
     Dosage: MAINTENANCE C1 WITH METOTHREXATE 1600 MG
     Dates: start: 20200129
  20. RITUXIMAB. [Suspect]
     Active Substance: RITUXIMAB
     Dosage: 4 INJECTIONS
     Dates: start: 201912
  21. ZELITREX 500 MG, COMPRIME ENROBE [Concomitant]
     Active Substance: VALACYCLOVIR HYDROCHLORIDE
     Dosage: 1 TABLET IN THE MORNING
  22. DOXORUBICIN [Suspect]
     Active Substance: DOXORUBICIN
     Dosage: MAINTENANCE C1 WITH DOXORUBICIN 96 MG
     Dates: start: 20200129
  23. CYCLOPHOSPHAMIDE. [Suspect]
     Active Substance: CYCLOPHOSPHAMIDE
     Dosage: MAINTENANCE C1 WITH CYCLOPHOSPHAMIDE 800 MG
     Dates: start: 20200129
  24. BIKTARVY 50 MG/200 MG/25 MG, COMPRIME PELLICULE [Concomitant]
     Dosage: 1 TABLET IN THE EVENING

REACTIONS (4)
  - Neutropenia [Recovering/Resolving]
  - Thrombocytopenia [Not Recovered/Not Resolved]
  - Agranulocytosis [Unknown]
  - B-cell aplasia [Unknown]

NARRATIVE: CASE EVENT DATE: 20200226
